FAERS Safety Report 8290600-3 (Version None)
Quarter: 2012Q2

REPORT INFORMATION
  Report Type: 
  Country: None (occurrence: None)
  Receive Date: 20120417
  Receipt Date: 20110404
  Transmission Date: 20120825
  Serious: No
  Sender: FDA-Public Use
  Company Number: US-ASTRAZENECA-2011SE19002

PATIENT
  Sex: Female

DRUGS (1)
  1. NEXIUM [Suspect]
     Route: 048
     Dates: start: 20060101

REACTIONS (14)
  - ARTHRITIS [None]
  - DRY MOUTH [None]
  - HORMONE LEVEL ABNORMAL [None]
  - PRURITUS [None]
  - BURN OF INTERNAL ORGANS [None]
  - PAIN IN EXTREMITY [None]
  - ARTHRALGIA [None]
  - MOUTH ULCERATION [None]
  - HAIR GROWTH ABNORMAL [None]
  - CHILLS [None]
  - BURNING SENSATION [None]
  - NEURALGIA [None]
  - INSOMNIA [None]
  - FLATULENCE [None]
